FAERS Safety Report 7372879-5 (Version None)
Quarter: 2011Q1

REPORT INFORMATION
  Report Type: 
  Country: None (occurrence: None)
  Receive Date: 20110324
  Receipt Date: 20110228
  Transmission Date: 20110831
  Serious: Yes (Other)
  Sender: FDA-Public Use
  Company Number: US-BAYER-201030137NA

PATIENT
  Sex: Female
  Weight: 45.351 kg

DRUGS (5)
  1. OXYCODONE HCL AND ACETAMINOPHEN [Concomitant]
     Dosage: 325 MG, UNK
     Route: 048
  2. HYOSCYAMINE [Concomitant]
  3. TUSSIONEX [Concomitant]
     Route: 048
  4. YAZ [Suspect]
     Indication: CONTRACEPTION
     Dosage: UNK
     Dates: start: 20080101, end: 20090101
  5. FLUTICASONE PROPIONATE [Concomitant]
     Dosage: UNK

REACTIONS (3)
  - CHOLECYSTITIS CHRONIC [None]
  - CHOLECYSTECTOMY [None]
  - CHOLELITHIASIS [None]
